FAERS Safety Report 18242212 (Version 1)
Quarter: 2020Q3

REPORT INFORMATION
  Report Type: Spontaneous
  Country: AR (occurrence: AR)
  Receive Date: 20200908
  Receipt Date: 20200908
  Transmission Date: 20201103
  Serious: Yes (Other)
  Sender: FDA-Public Use
  Company Number: AR-PFIZER INC-2020346321

PATIENT
  Age: 8 Year
  Sex: Male

DRUGS (1)
  1. GENOTROPIN [Suspect]
     Active Substance: SOMATROPIN
     Indication: HYPOPITUITARISM
     Dosage: 0.6 TO 1 MG, (7X/WEEK)
     Dates: start: 20200803

REACTIONS (3)
  - Chest discomfort [Unknown]
  - Emotional distress [Unknown]
  - Pneumonia [Unknown]

NARRATIVE: CASE EVENT DATE: 202009
